FAERS Safety Report 6631327-0 (Version None)
Quarter: 2010Q1

REPORT INFORMATION
  Report Type: 
  Country: None (occurrence: None)
  Receive Date: 20100311
  Receipt Date: 20100311
  Transmission Date: 20100710
  Serious: Yes (Hospitalization)
  Sender: FDA-Public Use
  Company Number: None

PATIENT
  Sex: Male
  Weight: 102.7 kg

DRUGS (2)
  1. FLUOROURACIL [Suspect]
     Dosage: 5160 MG
  2. CISPLATIN [Suspect]
     Dosage: 192 MG

REACTIONS (2)
  - LABORATORY TEST ABNORMAL [None]
  - OEDEMA [None]
